FAERS Safety Report 6628896-3 (Version None)
Quarter: 2010Q1

REPORT INFORMATION
  Report Type: 
  Country: None (occurrence: None)
  Receive Date: 20100311
  Receipt Date: 20100304
  Transmission Date: 20100710
  Serious: Yes (Hospitalization, Other)
  Sender: FDA-Public Use
  Company Number: US-MERCK-0706USA03751

PATIENT
  Age: 68 Year
  Sex: Female
  Weight: 61 kg

DRUGS (2)
  1. FOSAMAX [Suspect]
     Indication: OSTEOPOROSIS
     Route: 048
     Dates: start: 20040315, end: 20070917
  2. FOSAMAX PLUS D [Suspect]
     Indication: OSTEOPOROSIS
     Route: 048
     Dates: start: 20070901

REACTIONS (20)
  - ANXIETY [None]
  - BONE DENSITY DECREASED [None]
  - BREAST CANCER [None]
  - DYSPHAGIA [None]
  - GINGIVAL BLEEDING [None]
  - GINGIVAL PAIN [None]
  - GINGIVITIS [None]
  - GRIMACING [None]
  - INFECTION [None]
  - MULTIPLE INJURIES [None]
  - MYOFASCIAL PAIN SYNDROME [None]
  - ORAL DISCOMFORT [None]
  - ORAL LICHEN PLANUS [None]
  - OSTEONECROSIS [None]
  - PERIODONTAL DISEASE [None]
  - STOMATITIS [None]
  - TONGUE DISORDER [None]
  - TOOTH DISORDER [None]
  - TOOTH LOSS [None]
  - TOOTHACHE [None]
